FAERS Safety Report 4719869-6 (Version None)
Quarter: 2005Q3

REPORT INFORMATION
  Report Type: 
  Country: None (occurrence: None)
  Receive Date: 20050721
  Receipt Date: 20041221
  Transmission Date: 20060218
  Serious: No
  Sender: FDA-Public Use
  Company Number: US-GLAXOSMITHKLINE-A0538218A

PATIENT
  Age: 65 Year
  Sex: Male

DRUGS (9)
  1. AVANDIA [Suspect]
     Dosage: 4MG PER DAY
     Route: 048
     Dates: start: 20041119
  2. CHLORTHALIDONE [Concomitant]
  3. POTASSIUM CHLORIDE [Concomitant]
  4. CARDURA [Concomitant]
  5. GINKOBA [Concomitant]
  6. CALCIUM GLUCONATE [Concomitant]
  7. ZINC [Concomitant]
  8. FOLIC ACID [Concomitant]
  9. ASPIRIN [Concomitant]

REACTIONS (3)
  - ASTHENIA [None]
  - DIZZINESS [None]
  - FATIGUE [None]
